FAERS Safety Report 21705702 (Version 5)
Quarter: 2023Q1

REPORT INFORMATION
  Report Type: Spontaneous
  Country: US (occurrence: US)
  Receive Date: 20221209
  Receipt Date: 20230324
  Transmission Date: 20230417
  Serious: Yes (Hospitalization, Other)
  Sender: FDA-Public Use
  Company Number: US-TAKEDA-2022TUS090901

PATIENT
  Age: 94 Year
  Sex: Female
  Weight: 57.596 kg

DRUGS (1)
  1. NINLARO [Suspect]
     Active Substance: IXAZOMIB CITRATE
     Indication: Plasma cell myeloma
     Dosage: 3 MILLIGRAM, 1/WEEK
     Route: 048
     Dates: start: 20220725, end: 20230203

REACTIONS (11)
  - Plasma cell myeloma [Unknown]
  - Dehydration [Recovered/Resolved]
  - COVID-19 [Recovered/Resolved]
  - Acute kidney injury [Recovered/Resolved]
  - Urinary tract infection [Recovered/Resolved]
  - Physical deconditioning [Recovered/Resolved]
  - Breast cancer [Recovered/Resolved]
  - Pneumonia [Recovered/Resolved]
  - Diarrhoea [Recovered/Resolved]
  - Cough [Recovered/Resolved]
  - Drug intolerance [Recovered/Resolved]

NARRATIVE: CASE EVENT DATE: 20221128
